FAERS Safety Report 8331903-3 (Version None)
Quarter: 2012Q2

REPORT INFORMATION
  Report Type: 
  Country: None (occurrence: None)
  Receive Date: 20120502
  Receipt Date: 20120424
  Transmission Date: 20120825
  Serious: No
  Sender: FDA-Public Use
  Company Number: US-AMGEN-USASP2012025927

PATIENT
  Sex: Female

DRUGS (7)
  1. CENTRUM SILVER                     /01292501/ [Concomitant]
  2. FOLIC ACID [Concomitant]
     Dosage: UNK
  3. CALTRATE                           /00751519/ [Concomitant]
  4. PREDNISONE [Concomitant]
  5. ENBREL [Suspect]
     Indication: RHEUMATOID ARTHRITIS
     Dosage: 50 MG, UNK
  6. METHOTREXATE [Concomitant]
  7. PLAQUENIL [Concomitant]

REACTIONS (2)
  - FUNGAL INFECTION [None]
  - SKIN IRRITATION [None]
